FAERS Safety Report 6109356-5 (Version None)
Quarter: 2009Q1

REPORT INFORMATION
  Report Type: 
  Country: None (occurrence: None)
  Receive Date: 20090306
  Receipt Date: 20090306
  Transmission Date: 20090719
  Serious: No
  Sender: FDA-Public Use
  Company Number: None

PATIENT
  Age: 31 Year
  Sex: Male
  Weight: 77.1115 kg

DRUGS (4)
  1. ZICAM [Suspect]
     Indication: NASOPHARYNGITIS
     Dosage: SINGLE GEL-SWAB IN EA. NOSTRIL ONCE NASAL
     Route: 045
     Dates: start: 20090223, end: 20090223
  2. NYQUIL [Concomitant]
  3. TYLENOL COLD MULTI-SYMPTOM DAYTIME [Concomitant]
  4. NASAL SPRAY -OXYMETAZOLINE HYDROCHLORIDE- [Concomitant]

REACTIONS (7)
  - ANOSMIA [None]
  - DRUG INEFFECTIVE [None]
  - DYSGEUSIA [None]
  - DYSPNOEA [None]
  - EATING DISORDER [None]
  - FEAR [None]
  - RHINALGIA [None]
